FAERS Safety Report 14268264 (Version 2)
Quarter: 2017Q4

REPORT INFORMATION
  Report Type: Spontaneous
  Country: FR (occurrence: FR)
  Receive Date: 20171211
  Receipt Date: 20171227
  Transmission Date: 20180321
  Serious: Yes (Life-Threatening, Other)
  Sender: FDA-Public Use
  Company Number: FR-MYLANLABS-2017M1076865

PATIENT
  Age: 8 Year
  Sex: Male

DRUGS (5)
  1. CELECOXIB. [Suspect]
     Active Substance: CELECOXIB
     Indication: ATYPICAL TERATOID/RHABDOID TUMOUR OF CNS
     Dosage: 400 MG, CONTINUOUS FREQUENCY
     Route: 048
  2. BEVACIZUMAB. [Suspect]
     Active Substance: BEVACIZUMAB
     Indication: ATYPICAL TERATOID/RHABDOID TUMOUR OF CNS
     Dosage: 10 MG/KG, Q2W
     Route: 042
     Dates: start: 201604
  3. ETOPOSIDE. [Suspect]
     Active Substance: ETOPOSIDE
     Indication: ATYPICAL TERATOID/RHABDOID TUMOUR OF CNS
     Dosage: 50 MG/M2, UNK
  4. CYTARABINE. [Suspect]
     Active Substance: CYTARABINE
     Indication: ATYPICAL TERATOID/RHABDOID TUMOUR OF CNS
     Dosage: 35 MG, QD,
     Route: 037
     Dates: start: 201604
  5. CYCLOPHOSPHAMIDE. [Suspect]
     Active Substance: CYCLOPHOSPHAMIDE
     Indication: ATYPICAL TERATOID/RHABDOID TUMOUR OF CNS
     Dosage: 2.5 MG/KG, ALTERNATING 21 DAY CYCLES
     Route: 048

REACTIONS (4)
  - Injection site reaction [Unknown]
  - Neutropenia [Recovered/Resolved]
  - Influenza [Unknown]
  - Asthenia [Unknown]
